FAERS Safety Report 19979057 (Version 1)
Quarter: 2021Q4

REPORT INFORMATION
  Report Type: Spontaneous
  Country: US (occurrence: US)
  Receive Date: 20211020
  Receipt Date: 20211020
  Transmission Date: 20220303
  Serious: Yes (Hospitalization)
  Sender: FDA-Public Use
  Company Number: US-FRESENIUS MEDICAL CARE RENAL THERAPIES GROUP-FMC-2110-001613

PATIENT
  Age: 75 Year
  Sex: Female

DRUGS (3)
  1. DELFLEX WITH DEXTROSE 1.5% LOW MAGNESIUM LOW CALCIUM [Suspect]
     Active Substance: CALCIUM CHLORIDE\DEXTROSE\MAGNESIUM CHLORIDE\SODIUM CHLORIDE\SODIUM LACTATE
     Indication: End stage renal disease
     Dosage: 5 EXCHANGES, FILL VOLUME 2300 ML, DWELL TIME 2 HOURS 9 MINUTES, LAST FILL 1200 ML, NO DAYTIME DWELL,
     Route: 033
  2. DELFLEX WITH DEXTROSE 2.5% LOW MAGNESIUM LOW CALCIUM [Suspect]
     Active Substance: CALCIUM CHLORIDE\DEXTROSE\MAGNESIUM CHLORIDE\SODIUM CHLORIDE\SODIUM LACTATE
     Indication: End stage renal disease
     Dosage: 5 EXCHANGES, FILL VOLUME 2300 ML, DWELL TIME 2 HOURS 9 MINUTES, LAST FILL 1200 ML, NO DAYTIME DWELL,
     Route: 033
  3. DELFLEX WITH DEXTROSE 4.25% LOW MAGNESIUM LOW CALCIUM [Suspect]
     Active Substance: CALCIUM CHLORIDE\DEXTROSE\MAGNESIUM CHLORIDE\SODIUM CHLORIDE\SODIUM LACTATE
     Indication: End stage renal disease
     Dosage: 5 EXCHANGES, FILL VOLUME 2300 ML, DWELL TIME 2 HOURS 9 MINUTES, LAST FILL 1200 ML, NO DAYTIME DWELL,
     Route: 033

REACTIONS (1)
  - Ovarian cancer [Unknown]
